FAERS Safety Report 5203744-7 (Version None)
Quarter: 2007Q1

REPORT INFORMATION
  Report Type: 
  Country: None (occurrence: None)
  Receive Date: 20070110
  Receipt Date: 20070103
  Transmission Date: 20070707
  Serious: Yes (Other)
  Sender: FDA-Public Use
  Company Number: GB-BRISTOL-MYERS SQUIBB COMPANY-13630892

PATIENT
  Age: 54 Year
  Sex: Male

DRUGS (47)
  1. ACETAMINOPHEN [Suspect]
  2. AMOXICILLIN [Suspect]
     Route: 042
  3. FUROSEMIDE [Suspect]
     Route: 042
  4. FUROSEMIDE [Suspect]
     Route: 048
  5. HYDROCORTISONE [Suspect]
  6. POTASSIUM CHLORIDE [Suspect]
  7. VENTOLIN [Suspect]
  8. SILVER SULFADIAZINE [Suspect]
     Route: 061
  9. ACTRAPID [Suspect]
     Route: 042
  10. ALFENTANIL [Suspect]
  11. AQUASEPT [Suspect]
  12. BACTROBAN [Suspect]
  13. CALCIUM CHLORIDE [Suspect]
  14. CALCIUM GLUCONATE [Suspect]
     Route: 042
  15. CEFTRIAXONE [Suspect]
     Route: 042
  16. CLEXANE [Suspect]
     Route: 058
  17. DOBUTAMINE HCL [Suspect]
  18. FLUCONAZOLE [Suspect]
     Route: 042
  19. FRAGMIN [Suspect]
  20. LACTULOSE [Suspect]
  21. LANSOPRAZOLE [Suspect]
  22. LORAZEPAM [Suspect]
  23. MAGNESIUM SULFATE [Suspect]
  24. NORADRENALINE [Suspect]
  25. OMEPRAZOLE [Suspect]
     Route: 042
  26. PIRITON [Suspect]
     Route: 042
  27. POTASSIUM PHOSPHATES [Suspect]
  28. PROPOFOL [Suspect]
  29. SANDO-K [Suspect]
  30. SIMVASTATIN [Suspect]
  31. SODIUM BICARBONATE [Suspect]
     Route: 042
  32. SODIUM CHLORIDE [Suspect]
     Route: 042
  33. THIAMIN [Suspect]
     Route: 048
  34. TINZAPARIN [Suspect]
  35. VITAMIN K [Suspect]
  36. ASPIRIN [Concomitant]
     Route: 048
  37. ATROVENT [Concomitant]
  38. CIPROFLOXACIN [Concomitant]
     Route: 042
  39. AMOXICILLIN + CLAVULANATE POTASSIUM [Concomitant]
     Dates: start: 20060913
  40. ERYTHROMYCIN [Concomitant]
  41. METOCLOPRAMIDE [Concomitant]
     Route: 042
  42. MIDODRINE HCL [Concomitant]
     Route: 048
  43. PANTOPRAZOLE SODIUM [Concomitant]
     Route: 042
  44. TAZOCIN [Concomitant]
  45. VANCOMYCIN [Concomitant]
     Route: 042
  46. ZOPICLONE [Concomitant]
     Route: 048
  47. AMOXICILLIN [Concomitant]
     Route: 048
     Dates: start: 20060913

REACTIONS (1)
  - TOXIC EPIDERMAL NECROLYSIS [None]
